FAERS Safety Report 9199602 (Version 5)
Quarter: 2013Q3

REPORT INFORMATION
  Report Type: Spontaneous
  Country: US (occurrence: US)
  Receive Date: 20130329
  Receipt Date: 20130814
  Transmission Date: 20140515
  Serious: No
  Sender: FDA-Public Use
  Company Number: US-VERTEX PHARMACEUTICALS INC.-2013-004201

PATIENT
  Age: 35 Year
  Sex: Male

DRUGS (4)
  1. INCIVEK [Suspect]
     Indication: HEPATITIS C
     Dosage: 750 MG, TID
     Route: 048
     Dates: start: 20130321, end: 20130419
  2. PEGASYS [Suspect]
     Indication: HEPATITIS C
     Dosage: 180 ?G, WEEKLY
     Route: 058
     Dates: start: 20130321, end: 20130419
  3. RIBAVIRIN [Suspect]
     Indication: HEPATITIS C
     Dosage: 600 MG, BID
     Route: 048
     Dates: start: 20130321, end: 20130419
  4. ANTIPSYCHOTICS [Concomitant]

REACTIONS (5)
  - Malaise [Unknown]
  - Affect lability [Not Recovered/Not Resolved]
  - Irritability [Unknown]
  - Pruritus [Not Recovered/Not Resolved]
  - Rash maculo-papular [Recovered/Resolved]
